FAERS Safety Report 13002832 (Version 1)
Quarter: 2016Q4

REPORT INFORMATION
  Report Type: Spontaneous
  Country: US (occurrence: US)
  Receive Date: 20161205
  Receipt Date: 20161205
  Transmission Date: 20170207
  Serious: Yes (Disabling)
  Sender: FDA-Public Use
  Company Number: None

PATIENT
  Age: 63 Year
  Sex: Male
  Weight: 81 kg

DRUGS (8)
  1. VITAMIN D [Concomitant]
     Active Substance: CHOLECALCIFEROL
  2. QUAD3 PAP/PHEN/AL 30MG/3MG/30MCG [Suspect]
     Active Substance: ALPROSTADIL\PAPAVERINE\PHENTOLAMINE
     Indication: ERECTILE DYSFUNCTION
     Dosage: 1 INJECTION(S);OTHER ROUTE:INJECTED INTO THE CORPUS SPONGEUM?
     Dates: start: 20160801, end: 20160925
  3. VITAMIN B [Concomitant]
     Active Substance: VITAMIN B
  4. KRILL OIL [Concomitant]
     Active Substance: DIETARY SUPPLEMENT
  5. SAW PALMETTO [Concomitant]
     Active Substance: SAW PALMETTO
  6. MULTI-VITAMIN [Concomitant]
     Active Substance: .ALPHA.-TOCOPHEROL ACETATE, DL-\ASCORBIC ACID\CYANOCOBALAMIN\FLUORIDE ION\FOLIC ACID\NIACIN\PYRIDOXINE\RIBOFLAVIN\THIAMINE\VITAMIN A\VITAMIN D
  7. VITAMIN C [Concomitant]
     Active Substance: ASCORBIC ACID
  8. FISH OIL [Concomitant]
     Active Substance: FISH OIL

REACTIONS (2)
  - Injection site pain [None]
  - Injection site fibrosis [None]

NARRATIVE: CASE EVENT DATE: 20160905
